FAERS Safety Report 10288157 (Version 1)
Quarter: 2014Q3

REPORT INFORMATION
  Report Type: Spontaneous
  Country: US (occurrence: US)
  Receive Date: 20140709
  Receipt Date: 20140709
  Transmission Date: 20150326
  Serious: Yes (Other)
  Sender: FDA-Public Use
  Company Number: US-BAYER-2014-099211

PATIENT
  Age: 48 Year
  Sex: Female

DRUGS (4)
  1. GADAVIST [Suspect]
     Active Substance: GADOBUTROL
     Indication: ANOSMIA
  2. GADAVIST [Suspect]
     Active Substance: GADOBUTROL
     Indication: NEUROPATHY PERIPHERAL
  3. GADAVIST [Suspect]
     Active Substance: GADOBUTROL
     Indication: NUCLEAR MAGNETIC RESONANCE IMAGING BRAIN
     Dosage: 7.5 ML, ONCE
  4. OXYGEN. [Concomitant]
     Active Substance: OXYGEN

REACTIONS (4)
  - Dysgeusia [None]
  - Unresponsive to stimuli [None]
  - Feeling hot [None]
  - Vomiting [None]

NARRATIVE: CASE EVENT DATE: 20140630
